FAERS Safety Report 17963775 (Version 3)
Quarter: 2020Q4

REPORT INFORMATION
  Report Type: Report from Study
  Country: US (occurrence: US)
  Receive Date: 20200630
  Receipt Date: 20201009
  Transmission Date: 20210113
  Serious: Yes (Other)
  Sender: FDA-Public Use
  Company Number: US-BAYER-2020-125752

PATIENT
  Age: 49 Year
  Sex: Male

DRUGS (2)
  1. STIVARGA [Suspect]
     Active Substance: REGORAFENIB
     Indication: COLON CANCER
     Dosage: 160 MG DAILY, 21 DAYS
     Route: 048
     Dates: start: 20200601
  2. XELODA [Concomitant]
     Active Substance: CAPECITABINE
     Dosage: UNK

REACTIONS (4)
  - Spinal fracture [None]
  - Colon cancer metastatic [None]
  - Metastases to bone [None]
  - Malaise [None]
